FAERS Safety Report 6555124-X (Version None)
Quarter: 2010Q1

REPORT INFORMATION
  Report Type: 
  Country: None (occurrence: None)
  Receive Date: 20100126
  Receipt Date: 20100126
  Transmission Date: 20100710
  Serious: Yes (Life-Threatening, Hospitalization, Disabling, Other)
  Sender: FDA-Public Use
  Company Number: None

PATIENT
  Sex: Female
  Weight: 73.4827 kg

DRUGS (2)
  1. SIMVASTATIN [Suspect]
     Indication: RHABDOMYOLYSIS
     Dosage: 80 MG 1 A DAY
     Dates: start: 20090725, end: 20090810
  2. GENERIC FOR ZOCAR [Suspect]

REACTIONS (5)
  - FAECAL INCONTINENCE [None]
  - GAIT DISTURBANCE [None]
  - LOSS OF CONTROL OF LEGS [None]
  - MUSCULOSKELETAL DISORDER [None]
  - RHABDOMYOLYSIS [None]
